FAERS Safety Report 10290153 (Version 1)
Quarter: 2014Q3

REPORT INFORMATION
  Report Type: Spontaneous
  Country: FR (occurrence: FR)
  Receive Date: 20140710
  Receipt Date: 20140710
  Transmission Date: 20150326
  Serious: Yes (Hospitalization)
  Sender: FDA-Public Use
  Company Number: FR-ASTRAZENECA-2014SE48564

PATIENT
  Age: 31690 Day
  Sex: Female

DRUGS (6)
  1. SEVORANE [Suspect]
     Active Substance: SEVOFLURANE
     Indication: GENERAL ANAESTHESIA
     Route: 065
     Dates: start: 20140610, end: 20140610
  2. CARBOCAINE [Suspect]
     Active Substance: MEPIVACAINE HYDROCHLORIDE
     Indication: LOCAL ANAESTHESIA
     Dosage: PERI BULBAR
     Route: 053
     Dates: start: 20140610, end: 20140610
  3. PROPOFOL FRESENIUS (GENERIC PRODUCT - NON AZ PRODUCT ) [Suspect]
     Active Substance: PROPOFOL
     Indication: GENERAL ANAESTHESIA
     Route: 065
     Dates: start: 20140610, end: 20140610
  4. CORTANCYL [Concomitant]
     Active Substance: PREDNISONE
  5. MIOREL [Concomitant]
     Active Substance: ORPHENADRINE
  6. ZOLPIDEM [Concomitant]
     Active Substance: ZOLPIDEM\ZOLPIDEM TARTRATE

REACTIONS (6)
  - Hypotension [Unknown]
  - Vomiting [Unknown]
  - Bradycardia [Unknown]
  - Malaise [Recovered/Resolved]
  - Loss of consciousness [Unknown]
  - Nausea [Unknown]

NARRATIVE: CASE EVENT DATE: 20140610
